FAERS Safety Report 15486780 (Version 1)
Quarter: 2018Q4

REPORT INFORMATION
  Report Type: Spontaneous
  Country: ZA (occurrence: ZA)
  Receive Date: 20181011
  Receipt Date: 20181011
  Transmission Date: 20190205
  Serious: Yes (Other)
  Sender: FDA-Public Use
  Company Number: ZA-LUPIN PHARMACEUTICALS INC.-2018-07186

PATIENT

DRUGS (2)
  1. DYNAVAL CO 80/12.5 MG [Suspect]
     Active Substance: HYDROCHLOROTHIAZIDE\VALSARTAN
     Indication: HYPERTENSION
     Dosage: UNK (80/12.5 MG)
     Route: 048
     Dates: start: 20170928, end: 20180730
  2. OVRAL /00022701/ [Suspect]
     Active Substance: ETHINYL ESTRADIOL\LEVONORGESTREL
     Indication: CONTRACEPTION
     Dosage: 50 MCG, UNK
     Route: 048
     Dates: start: 20170210

REACTIONS (1)
  - Breast cancer [Unknown]
